FAERS Safety Report 5253653-2 (Version None)
Quarter: 2007Q1

REPORT INFORMATION
  Report Type: 
  Country: None (occurrence: None)
  Receive Date: 20061201
  Receipt Date: 20060726
  Transmission Date: 20070707
  Serious: No
  Sender: FDA-Public Use
  Company Number: 2006PV018375

PATIENT
  Age: 53 Year
  Sex: Female

DRUGS (1)
  1. BYETTA [Suspect]
     Indication: DRUG USE FOR UNKNOWN INDICATION
     Dosage: 5 MCG;UNK;SC
     Route: 058

REACTIONS (3)
  - BLOOD GLUCOSE DECREASED [None]
  - ENERGY INCREASED [None]
  - INCREASED APPETITE [None]
